FAERS Safety Report 16789597 (Version 1)
Quarter: 2019Q3

REPORT INFORMATION
  Report Type: Spontaneous
  Country: US (occurrence: US)
  Receive Date: 20190910
  Receipt Date: 20190910
  Transmission Date: 20191005
  Serious: No
  Sender: FDA-Public Use
  Company Number: US-ALKERMES INC.-ALK-2019-003772

PATIENT
  Age: 55 Year
  Sex: Male
  Weight: 126.76 kg

DRUGS (2)
  1. ARISTADA [Suspect]
     Active Substance: ARIPIPRAZOLE LAUROXIL
     Indication: SCHIZOAFFECTIVE DISORDER BIPOLAR TYPE
     Dosage: 662 MG, Q6WK
     Route: 030
  2. ARISTADA [Suspect]
     Active Substance: ARIPIPRAZOLE LAUROXIL
     Dosage: 662 MG, QMO
     Route: 030
     Dates: start: 20181025, end: 20181025

REACTIONS (5)
  - Needle issue [Recovered/Resolved]
  - Adverse event [Recovering/Resolving]
  - Off label use [Not Recovered/Not Resolved]
  - Underdose [Recovered/Resolved]
  - Inappropriate schedule of product administration [Not Recovered/Not Resolved]

NARRATIVE: CASE EVENT DATE: 20181025
